FAERS Safety Report 8041011-7 (Version None)
Quarter: 2012Q1

REPORT INFORMATION
  Report Type: 
  Country: None (occurrence: None)
  Receive Date: 20120112
  Receipt Date: 20081124
  Transmission Date: 20120608
  Serious: No
  Sender: FDA-Public Use
  Company Number: 2008BI031966

PATIENT
  Age: 35 Year
  Sex: Female

DRUGS (2)
  1. FLEXERIL [Concomitant]
     Indication: MUSCLE SPASMS
  2. TYSABRI [Suspect]
     Indication: MULTIPLE SCLEROSIS
     Route: 042
     Dates: start: 20081029

REACTIONS (7)
  - AGITATION [None]
  - ASTHENIA [None]
  - FATIGUE [None]
  - APHASIA [None]
  - COORDINATION ABNORMAL [None]
  - MULTIPLE SCLEROSIS RELAPSE [None]
  - NAUSEA [None]
